FAERS Safety Report 6800894-6 (Version None)
Quarter: 2010Q2

REPORT INFORMATION
  Report Type: 
  Country: None (occurrence: None)
  Receive Date: 20100624
  Receipt Date: 20100608
  Transmission Date: 20101027
  Serious: Yes (Other)
  Sender: FDA-Public Use
  Company Number: 2010SP034434

PATIENT
  Age: 19 Year
  Sex: Female

DRUGS (1)
  1. CERAZETTE (DESOGESTREL /00754001) [Suspect]
     Indication: CONTRACEPTION
     Dosage: 75 MCG
     Dates: start: 20100203, end: 20100203

REACTIONS (2)
  - LIP SWELLING [None]
  - URTICARIA [None]
